FAERS Safety Report 4866439-5 (Version None)
Quarter: 2005Q4

REPORT INFORMATION
  Report Type: 
  Country: None (occurrence: None)
  Receive Date: 20051227
  Receipt Date: 20051122
  Transmission Date: 20060501
  Serious: Yes (Hospitalization, Disabling)
  Sender: FDA-Public Use
  Company Number: US-MERCK-0511USA03927

PATIENT
  Age: 56 Year
  Sex: Female
  Weight: 108 kg

DRUGS (10)
  1. VIOXX [Suspect]
     Indication: ARTHRITIS
     Route: 048
     Dates: start: 19991025, end: 20040925
  2. ACTOS [Concomitant]
     Route: 048
  3. GLUCOPHAGE XR [Concomitant]
     Route: 048
  4. ZOCOR [Concomitant]
     Route: 048
  5. K-DUR 10 [Concomitant]
     Route: 048
  6. TOPROL-XL [Concomitant]
     Route: 048
  7. HYZAAR [Concomitant]
     Route: 065
  8. HYDROCHLOROTHIAZIDE [Concomitant]
     Route: 048
  9. FLOVENT [Concomitant]
     Route: 055
  10. COMBIVENT [Concomitant]
     Route: 055

REACTIONS (5)
  - BACK INJURY [None]
  - BLOOD POTASSIUM DECREASED [None]
  - CEREBRAL INFARCTION [None]
  - CEREBROVASCULAR ACCIDENT [None]
  - SINUSITIS [None]
